FAERS Safety Report 11773978 (Version 1)
Quarter: 2015Q4

REPORT INFORMATION
  Report Type: Spontaneous
  Country: DE (occurrence: DE)
  Receive Date: 20151124
  Receipt Date: 20151124
  Transmission Date: 20160304
  Serious: Yes (Other)
  Sender: FDA-Public Use
  Company Number: DE-GLAXOSMITHKLINE-DE2015GSK160676

PATIENT
  Sex: Female

DRUGS (4)
  1. ELONTRIL [Suspect]
     Active Substance: BUPROPION HYDROCHLORIDE
     Indication: PRODUCT USED FOR UNKNOWN INDICATION
     Dosage: 1 TABLET, QD
     Dates: start: 20150926, end: 20151016
  2. ELONTRIL [Suspect]
     Active Substance: BUPROPION HYDROCHLORIDE
     Dosage: 1 TABLET, QD
     Dates: start: 20151101, end: 20151105
  3. IRON [Concomitant]
     Active Substance: IRON
     Indication: PRODUCT USED FOR UNKNOWN INDICATION
     Dosage: UNK
  4. ELONTRIL [Suspect]
     Active Substance: BUPROPION HYDROCHLORIDE
     Dosage: 2 TABLET, QD
     Dates: start: 20151017, end: 20151031

REACTIONS (10)
  - Hypoaesthesia [Recovering/Resolving]
  - Headache [Recovering/Resolving]
  - Mental disorder [Recovering/Resolving]
  - Sleep disorder [Recovering/Resolving]
  - Nausea [Recovering/Resolving]
  - Depression [Recovering/Resolving]
  - Intentional self-injury [Recovering/Resolving]
  - Memory impairment [Recovering/Resolving]
  - Asthenia [Recovering/Resolving]
  - Ill-defined disorder [Recovering/Resolving]
